FAERS Safety Report 10214567 (Version 1)
Quarter: 2014Q2

REPORT INFORMATION
  Report Type: Spontaneous
  Country: GB (occurrence: GB)
  Receive Date: 20140603
  Receipt Date: 20140603
  Transmission Date: 20141212
  Serious: Yes (Other)
  Sender: FDA-Public Use
  Company Number: GB-BAYER-2014-082037

PATIENT
  Age: 39 Year
  Sex: Female
  Weight: 69.85 kg

DRUGS (1)
  1. MIRENA [Suspect]
     Indication: MENSTRUAL DISORDER
     Dosage: 20 MCG/24HR, CONT
     Route: 015
     Dates: start: 20140505

REACTIONS (7)
  - Mood altered [Recovered/Resolved]
  - Abdominal pain [Recovered/Resolved]
  - Discomfort [Unknown]
  - Hunger [Unknown]
  - Irritability [Unknown]
  - Loss of libido [Recovered/Resolved]
  - Nausea [Unknown]
